FAERS Safety Report 8798606 (Version 1)
Quarter: 2012Q4

REPORT INFORMATION
  Report Type: Spontaneous
  Country: US (occurrence: None)
  Receive Date: 20120914
  Receipt Date: 20120914
  Transmission Date: 20130627
  Serious: Yes (Hospitalization)
  Sender: FDA-Public Use
  Company Number: US-DEXPHARM-20121216

PATIENT
  Age: 76 Year
  Sex: Male
  Weight: 79.36 kg

DRUGS (5)
  1. OMEPRAZOLE [Suspect]
     Indication: PREVENTION
     Dosage: times a day
     Dates: start: 20120731
  2. VITAMINS [Concomitant]
  3. BABY ASPIRIN [Concomitant]
  4. NORVASC [Concomitant]
  5. DIURETICS [Concomitant]

REACTIONS (2)
  - Cardiac flutter [None]
  - Paraesthesia [None]
